FAERS Safety Report 6809362-9 (Version None)
Quarter: 2010Q2

REPORT INFORMATION
  Report Type: 
  Country: None (occurrence: None)
  Receive Date: 20100630
  Receipt Date: 20100622
  Transmission Date: 20101027
  Serious: Yes (Other)
  Sender: FDA-Public Use
  Company Number: MY-SANOFI-AVENTIS-2010SA036300

PATIENT
  Age: 80 Year
  Sex: Female

DRUGS (3)
  1. PLAQUENIL [Suspect]
     Indication: RHEUMATOID ARTHRITIS
     Route: 048
     Dates: start: 20100501, end: 20100610
  2. METFORMIN HCL [Suspect]
     Route: 048
  3. GLICLAZIDE [Suspect]
     Route: 048
     Dates: end: 20100610

REACTIONS (2)
  - HYPOGLYCAEMIA [None]
  - LOSS OF CONSCIOUSNESS [None]
